FAERS Safety Report 16874521 (Version 1)
Quarter: 2019Q4

REPORT INFORMATION
  Report Type: Spontaneous
  Country: FR (occurrence: FR)
  Receive Date: 20191001
  Receipt Date: 20191001
  Transmission Date: 20200122
  Serious: Yes (Life-Threatening, Hospitalization)
  Sender: FDA-Public Use
  Company Number: FR-MYLANLABS-2019M1091729

PATIENT
  Age: 44 Year
  Sex: Male

DRUGS (10)
  1. RIVOTRIL [Suspect]
     Active Substance: CLONAZEPAM
     Indication: STATUS EPILEPTICUS
     Dosage: 2 MILLIGRAM, QD
     Route: 051
     Dates: start: 20190328, end: 20190328
  2. THIOPENTAL SODIQUE [Suspect]
     Active Substance: THIOPENTAL SODIUM
     Indication: SEDATION
     Dosage: UNK
     Route: 051
     Dates: start: 20190328, end: 20190328
  3. ALEPSAL                            /01606601/ [Suspect]
     Active Substance: CAFFEINE\PHENOBARBITAL
     Indication: EPILEPSY
     Dosage: 100 MILLIGRAM, QD
     Route: 048
     Dates: end: 20190328
  4. DILANTIN [Suspect]
     Active Substance: PHENYTOIN
     Indication: STATUS EPILEPTICUS
     Dosage: 160 MILLIGRAM, QD
     Route: 051
     Dates: start: 20190328, end: 20190328
  5. LAMICTAL [Suspect]
     Active Substance: LAMOTRIGINE
     Indication: EPILEPSY
     Dosage: 225 MILLIGRAM, QD
     Route: 048
  6. CEFTRIAXONE MYLAN [Suspect]
     Active Substance: CEFTRIAXONE
     Indication: HYPERTHERMIA
     Dosage: 4 GRAM, QD
     Route: 051
     Dates: start: 20190328, end: 20190331
  7. CELOCURINE                         /00057702/ [Suspect]
     Active Substance: SUCCINYLCHOLINE CHLORIDE
     Indication: SEDATION
     Dosage: UNK
     Route: 051
     Dates: start: 20190328, end: 20190328
  8. PROPOFOL. [Suspect]
     Active Substance: PROPOFOL
     Indication: SEDATION
     Dosage: UNK
     Route: 051
     Dates: start: 20190328, end: 20190329
  9. FENTANYL. [Suspect]
     Active Substance: FENTANYL
     Indication: SEDATION
     Dosage: UNK
     Route: 051
     Dates: start: 20190328, end: 20190328
  10. REMIFENTANIL MYLAN [Suspect]
     Active Substance: REMIFENTANIL
     Indication: SEDATION
     Dosage: UNK
     Route: 051
     Dates: start: 20190328, end: 20190329

REACTIONS (3)
  - Disseminated intravascular coagulation [Recovered/Resolved with Sequelae]
  - Hepatocellular injury [Recovered/Resolved with Sequelae]
  - Hepatitis fulminant [Recovered/Resolved with Sequelae]

NARRATIVE: CASE EVENT DATE: 20190329
